FAERS Safety Report 11696667 (Version 2)
Quarter: 2015Q4

REPORT INFORMATION
  Report Type: Spontaneous
  Country: US (occurrence: US)
  Receive Date: 20151104
  Receipt Date: 20151125
  Transmission Date: 20160304
  Serious: Yes (Other)
  Sender: FDA-Public Use
  Company Number: US-BAYER-2015-452924

PATIENT
  Age: 60 Year
  Sex: Female

DRUGS (1)
  1. BETASERON [Suspect]
     Active Substance: INTERFERON BETA-1B

REACTIONS (10)
  - Movement disorder [None]
  - Abasia [None]
  - Injection site pain [None]
  - Diplopia [None]
  - Gait disturbance [None]
  - Multiple sclerosis [None]
  - Vision blurred [None]
  - Injection site induration [None]
  - Drug dose omission [None]
  - Visual acuity reduced [None]
